FAERS Safety Report 11646274 (Version 2)
Quarter: 2016Q2

REPORT INFORMATION
  Report Type: Spontaneous
  Country: US (occurrence: US)
  Receive Date: 20151020
  Receipt Date: 20160429
  Transmission Date: 20160815
  Serious: No
  Sender: FDA-Public Use
  Company Number: US-ROCHE-1613274

PATIENT
  Sex: Male
  Weight: 74.46 kg

DRUGS (2)
  1. ESBRIET [Suspect]
     Active Substance: PIRFENIDONE
     Indication: IDIOPATHIC PULMONARY FIBROSIS
     Dosage: 3 CAPSULES 3 TIMES A DAY
     Route: 048
     Dates: start: 20150305
  2. CIALIS [Concomitant]
     Active Substance: TADALAFIL

REACTIONS (7)
  - Glossodynia [Unknown]
  - Dyspepsia [Unknown]
  - Dysgeusia [Unknown]
  - Faeces soft [Unknown]
  - Weight decreased [Unknown]
  - Diarrhoea [Unknown]
  - Decreased appetite [Unknown]
